FAERS Safety Report 13902920 (Version 2)
Quarter: 2017Q4

REPORT INFORMATION
  Report Type: Spontaneous
  Country: JP (occurrence: JP)
  Receive Date: 20170824
  Receipt Date: 20171110
  Transmission Date: 20180320
  Serious: Yes (Other)
  Sender: FDA-Public Use
  Company Number: JP-ROCHE-1978346

PATIENT
  Age: 65 Year
  Sex: Male

DRUGS (6)
  1. AVASTIN [Suspect]
     Active Substance: BEVACIZUMAB
     Indication: LUNG ADENOCARCINOMA
  2. MANNITOL. [Concomitant]
     Active Substance: MANNITOL
     Dosage: DOSAGE IS UNCERTAIN
     Route: 065
  3. TARCEVA [Suspect]
     Active Substance: ERLOTINIB HYDROCHLORIDE
     Indication: METASTASES TO MENINGES
     Dosage: THE FRACTIONATION DOSE FREQUENCY IS UNCERTAIN.?DOSE INTERVAL UNCERTAINTY
     Route: 048
  4. DEXAMETHASONE. [Concomitant]
     Active Substance: DEXAMETHASONE
     Dosage: DOSAGE IS UNCERTAIN
     Route: 065
  5. TARCEVA [Suspect]
     Active Substance: ERLOTINIB HYDROCHLORIDE
     Indication: LUNG ADENOCARCINOMA
  6. AVASTIN [Suspect]
     Active Substance: BEVACIZUMAB
     Indication: METASTASES TO MENINGES
     Dosage: THE FRACTIONATION DOSE FREQUENCY IS UNCERTAIN.?DOSE INTERVAL UNCERTAINTY
     Route: 041

REACTIONS (4)
  - Aspartate aminotransferase increased [Recovering/Resolving]
  - Gastrointestinal haemorrhage [Unknown]
  - Hepatotoxicity [Recovered/Resolved]
  - Alanine aminotransferase increased [Recovering/Resolving]
